FAERS Safety Report 12379447 (Version 1)
Quarter: 2016Q2

REPORT INFORMATION
  Report Type: Spontaneous
  Country: US (occurrence: US)
  Receive Date: 20160517
  Receipt Date: 20160517
  Transmission Date: 20160815
  Serious: No
  Sender: FDA-Public Use
  Company Number: US-TEIKOKU PHARMA USA-TPU2015-00340

PATIENT
  Sex: Male
  Weight: 99.88 kg

DRUGS (2)
  1. BENAPRIL [Concomitant]
     Indication: HYPERTENSION
     Dates: start: 2007
  2. LIDODERM [Suspect]
     Active Substance: LIDOCAINE
     Indication: MYALGIA
     Route: 061
     Dates: start: 2013

REACTIONS (1)
  - Hypoacusis [Not Recovered/Not Resolved]

NARRATIVE: CASE EVENT DATE: 2014
